FAERS Safety Report 15112140 (Version 1)
Quarter: 2018Q3

REPORT INFORMATION
  Report Type: Spontaneous
  Country: US (occurrence: US)
  Receive Date: 20180705
  Receipt Date: 20180705
  Transmission Date: 20181010
  Serious: No
  Sender: FDA-Public Use
  Company Number: PHEH2018US027674

PATIENT
  Sex: Female

DRUGS (1)
  1. HYCAMTIN [Suspect]
     Active Substance: TOPOTECAN HYDROCHLORIDE
     Indication: LUNG NEOPLASM MALIGNANT
     Dosage: 2 DF, UNK (DAILY FOR 5 DAYS EVERY 21 DAYS)
     Route: 048
     Dates: start: 20180317, end: 20180514

REACTIONS (3)
  - Confusional state [Unknown]
  - Vomiting [Unknown]
  - Nausea [Unknown]
